FAERS Safety Report 5141520-4 (Version None)
Quarter: 2006Q4

REPORT INFORMATION
  Report Type: 
  Country: None (occurrence: None)
  Receive Date: 20061101
  Receipt Date: 20061017
  Transmission Date: 20070319
  Serious: Yes (Hospitalization)
  Sender: FDA-Public Use
  Company Number: US-ELI_LILLY_AND_COMPANY-US200610003386

PATIENT
  Sex: Female

DRUGS (2)
  1. CYMBALTA [Suspect]
     Indication: MAJOR DEPRESSION
     Dosage: 30 MG, DAILY (1/D)
  2. ZOLOFT [Concomitant]
     Dosage: UNK MG, UNK

REACTIONS (4)
  - DIARRHOEA [None]
  - GASTRIC BYPASS [None]
  - NAUSEA [None]
  - VOMITING [None]
